FAERS Safety Report 17825540 (Version 2)
Quarter: 2020Q2

REPORT INFORMATION
  Report Type: Report from Study
  Country: CA (occurrence: CA)
  Receive Date: 20200526
  Receipt Date: 20200527
  Transmission Date: 20200714
  Serious: Yes (Other)
  Sender: FDA-Public Use
  Company Number: CA-PFIZER INC-2020204433

PATIENT
  Sex: Male

DRUGS (13)
  1. ASPIRIN [ACETYLSALICYLIC ACID] [Concomitant]
     Active Substance: ASPIRIN
  2. GABAPENTIN. [Concomitant]
     Active Substance: GABAPENTIN
  3. MORPHINE [Concomitant]
     Active Substance: MORPHINE
  4. PREGABALIN. [Concomitant]
     Active Substance: PREGABALIN
  5. ROBAXIN [Concomitant]
     Active Substance: METHOCARBAMOL
  6. PACLITAXEL. [Suspect]
     Active Substance: PACLITAXEL
     Indication: LUNG NEOPLASM MALIGNANT
  7. CARBOPLATIN. [Suspect]
     Active Substance: CARBOPLATIN
     Indication: LUNG NEOPLASM MALIGNANT
  8. METHADONE [Concomitant]
     Active Substance: METHADONE HYDROCHLORIDE
  9. TARCEVA [Concomitant]
     Active Substance: ERLOTINIB HYDROCHLORIDE
  10. ZOPLICONE [Concomitant]
     Active Substance: ZOPICLONE
  11. BEVACIZUMAB. [Suspect]
     Active Substance: BEVACIZUMAB
     Indication: LUNG CANCER METASTATIC
     Dosage: 1671 MG, EVERY 3 WEEKS
     Route: 042
  12. DEXAMETHASONE. [Concomitant]
     Active Substance: DEXAMETHASONE
  13. IBUPROFEN. [Concomitant]
     Active Substance: IBUPROFEN

REACTIONS (8)
  - Pain [Not Recovered/Not Resolved]
  - Pain in extremity [Not Recovered/Not Resolved]
  - Gait disturbance [Not Recovered/Not Resolved]
  - Hepatic enzyme increased [Not Recovered/Not Resolved]
  - Nerve injury [Not Recovered/Not Resolved]
  - Chromaturia [Not Recovered/Not Resolved]
  - Movement disorder [Not Recovered/Not Resolved]
  - Weight bearing difficulty [Not Recovered/Not Resolved]
